FAERS Safety Report 11567472 (Version 2)
Quarter: 2018Q2

REPORT INFORMATION
  Report Type: Report from Study
  Country: GR (occurrence: GR)
  Receive Date: 20150929
  Receipt Date: 20180627
  Transmission Date: 20180711
  Serious: Yes (Other)
  Sender: FDA-Public Use
  Company Number: GR-ROCHE-1639464

PATIENT

DRUGS (3)
  1. CAPECITABINE. [Suspect]
     Active Substance: CAPECITABINE
     Indication: COLORECTAL CANCER METASTATIC
     Dosage: DAYS 1-14 REPEATED EVERY 21 DAYS
     Route: 048
  2. OXALIPLATIN. [Suspect]
     Active Substance: OXALIPLATIN
     Indication: COLORECTAL CANCER METASTATIC
     Dosage: ON DAY 1
     Route: 065
  3. PANITUMUMAB [Suspect]
     Active Substance: PANITUMUMAB
     Indication: COLORECTAL CANCER METASTATIC
     Dosage: ON DAY 1
     Route: 065

REACTIONS (24)
  - Anaemia [Unknown]
  - Leukopenia [Unknown]
  - Skin toxicity [Unknown]
  - Nausea [Unknown]
  - Hypersensitivity [Unknown]
  - Neutropenia [Unknown]
  - Diarrhoea [Unknown]
  - Hepatotoxicity [Unknown]
  - Hypokalaemia [Unknown]
  - Palmar-plantar erythrodysaesthesia syndrome [Unknown]
  - Fatigue [Unknown]
  - Deep vein thrombosis [Unknown]
  - Thrombocytopenia [Unknown]
  - Peripheral sensory neuropathy [Unknown]
  - Acne [Unknown]
  - Constipation [Unknown]
  - Vomiting [Unknown]
  - Decreased appetite [Unknown]
  - Device related thrombosis [Unknown]
  - Hypomagnesaemia [Unknown]
  - Mucosal inflammation [Unknown]
  - Dysgeusia [Unknown]
  - Infection [Unknown]
  - Embolism [Unknown]
